FAERS Safety Report 8268272-3 (Version None)
Quarter: 2012Q2

REPORT INFORMATION
  Report Type: 
  Country: None (occurrence: None)
  Receive Date: 20120409
  Receipt Date: 20120330
  Transmission Date: 20120825
  Serious: Yes (Other)
  Sender: FDA-Public Use
  Company Number: PHHY2012AU028426

PATIENT
  Age: 50 Year
  Sex: Male

DRUGS (10)
  1. PREDNISONE [Concomitant]
     Dosage: 20 MG, QD
  2. PREDNISONE [Concomitant]
     Dosage: 5 MG, QD
  3. METHOTREXATE [Suspect]
     Indication: RHEUMATOID ARTHRITIS
     Dosage: 20 MG, QW
  4. HYDROXYCHLOROQUINE SULFATE [Concomitant]
     Dosage: 400 MG, QD
  5. ETANERCEPT [Suspect]
     Dosage: 50 MG, QW
     Dates: start: 20060201
  6. ADALIMUMAB [Suspect]
  7. CELECOXIB [Concomitant]
     Dosage: 200 MG, QD
  8. METHOTREXATE [Suspect]
     Dosage: 10 MG, QW
  9. PREDNISONE [Concomitant]
     Dosage: 10 MG, QD
  10. LEFLUNOMIDE [Concomitant]
     Dosage: 10 MG, QD

REACTIONS (6)
  - ANGIOTENSIN CONVERTING ENZYME INCREASED [None]
  - SOFT TISSUE DISORDER [None]
  - HILAR LYMPHADENOPATHY [None]
  - GRANULOMA [None]
  - SARCOIDOSIS [None]
  - LYMPHADENOPATHY MEDIASTINAL [None]
